FAERS Safety Report 18090064 (Version 1)
Quarter: 2020Q3

REPORT INFORMATION
  Report Type: Spontaneous
  Country: CN (occurrence: CN)
  Receive Date: 20200730
  Receipt Date: 20200730
  Transmission Date: 20201103
  Serious: Yes (Other)
  Sender: FDA-Public Use
  Company Number: CN-ROCHE-2649839

PATIENT
  Age: 54 Year
  Sex: Male

DRUGS (21)
  1. VINCRISTINE [Concomitant]
     Active Substance: VINCRISTINE
     Indication: B-CELL LYMPHOMA
     Dosage: THE THERAPY DETAILS WAS UNKNOWN
  2. LENALIDOMIDE [Concomitant]
     Active Substance: LENALIDOMIDE
     Dates: start: 20200427, end: 20200514
  3. DOXORUBICIN [Concomitant]
     Active Substance: DOXORUBICIN
     Indication: B-CELL LYMPHOMA
     Dosage: THE THERAPY DETAILS WAS UNKNOWN
  4. ETOPOSIDE. [Concomitant]
     Active Substance: ETOPOSIDE
     Indication: B-CELL LYMPHOMA
     Dosage: THE THERAPY DETAILS WAS UNKNOWN
  5. PREDNISONE. [Concomitant]
     Active Substance: PREDNISONE
     Indication: B-CELL LYMPHOMA
     Dosage: THE THERAPY DETAILS WAS UNKNOWN
  6. LENALIDOMIDE [Concomitant]
     Active Substance: LENALIDOMIDE
     Indication: B-CELL LYMPHOMA
     Dates: start: 20200219, end: 20200305
  7. METHYLPREDNISOLONE SODIUM SUCCINATE. [Concomitant]
     Active Substance: METHYLPREDNISOLONE SODIUM SUCCINATE
     Indication: B-CELL LYMPHOMA
     Dosage: THE THERAPY DETAILS WAS UNKNOWN
  8. LENALIDOMIDE [Concomitant]
     Active Substance: LENALIDOMIDE
     Dosage: 25 MG ONCE OTHER DAY
     Dates: start: 20200306, end: 20200317
  9. CYCLOPHOSPHAMIDE. [Concomitant]
     Active Substance: CYCLOPHOSPHAMIDE
     Indication: B-CELL LYMPHOMA
     Dosage: THE THERAPY DETAILS WAS UNKNOWN
  10. THALIDOMIDE [Concomitant]
     Active Substance: THALIDOMIDE
     Indication: B-CELL LYMPHOMA
     Dosage: THE THERAPY DETAILS WAS UNKNOWN
  11. IBRUTINIB [Concomitant]
     Active Substance: IBRUTINIB
     Dates: start: 20200320, end: 20200426
  12. IBRUTINIB [Concomitant]
     Active Substance: IBRUTINIB
     Dates: start: 20200427, end: 20200514
  13. IBRUTINIB [Concomitant]
     Active Substance: IBRUTINIB
     Dates: start: 20200514, end: 20200527
  14. GEMCITABINE. [Concomitant]
     Active Substance: GEMCITABINE
     Indication: B-CELL LYMPHOMA
     Dosage: THE THERAPY DETAILS WAS UNKNOWN
  15. MABTHERA [Suspect]
     Active Substance: RITUXIMAB
     Indication: B-CELL LYMPHOMA
     Dosage: THE THERAPY DETAILS WAS UNKNOWN
     Route: 065
  16. CISPLATIN. [Concomitant]
     Active Substance: CISPLATIN
     Indication: B-CELL LYMPHOMA
     Dosage: THE THERAPY DETAILS WAS UNKNOWN
  17. FLUDARABINE [Concomitant]
     Active Substance: FLUDARABINE PHOSPHATE
     Indication: B-CELL LYMPHOMA
     Dosage: THE THERAPY DETAILS WAS UNKNOWN
  18. ENTECAVIR. [Concomitant]
     Active Substance: ENTECAVIR
     Indication: B-CELL LYMPHOMA
     Dosage: THE THERAPY DETAILS WAS UNKNOWN
     Route: 048
  19. DEXAMETHASONE. [Concomitant]
     Active Substance: DEXAMETHASONE
     Indication: B-CELL LYMPHOMA
     Dosage: THE THERAPY DETAILS WAS UNKNOWN
  20. CYTARABINE. [Concomitant]
     Active Substance: CYTARABINE
     Indication: B-CELL LYMPHOMA
     Dosage: THE THERAPY DETAILS WAS UNKNOWN
  21. IBRUTINIB [Concomitant]
     Active Substance: IBRUTINIB
     Indication: B-CELL LYMPHOMA
     Dates: start: 20200303, end: 20200319

REACTIONS (7)
  - Cytopenia [Unknown]
  - Hepatitis B DNA increased [Unknown]
  - Pleural effusion [Unknown]
  - Hepatitis B surface antigen positive [Unknown]
  - Hepatic function abnormal [Unknown]
  - Pneumocystis jirovecii infection [Unknown]
  - Platelet count decreased [Unknown]
